FAERS Safety Report 24360869 (Version 1)
Quarter: 2024Q3

REPORT INFORMATION
  Report Type: Spontaneous
  Country: BE (occurrence: BE)
  Receive Date: 20240925
  Receipt Date: 20240925
  Transmission Date: 20241016
  Serious: Yes (Other)
  Sender: AUROBINDO
  Company Number: BE-AMGEN-BELSP2019131305

PATIENT
  Age: 13 Year
  Sex: Female

DRUGS (2)
  1. CINACALCET [Suspect]
     Active Substance: CINACALCET
     Indication: Familial hypocalciuric hypercalcaemia
     Dosage: 40 MILLIGRAM
     Route: 065
  2. CINACALCET [Suspect]
     Active Substance: CINACALCET
     Dosage: 30 MILLIGRAM
     Route: 065

REACTIONS (3)
  - Pancreatitis [Unknown]
  - Hypocalcaemia [Unknown]
  - Off label use [Unknown]
